FAERS Safety Report 5291608-2 (Version None)
Quarter: 2007Q2

REPORT INFORMATION
  Report Type: 
  Country: None (occurrence: None)
  Receive Date: 20070410
  Receipt Date: 20070308
  Transmission Date: 20071010
  Serious: Yes (Hospitalization, Other)
  Sender: FDA-Public Use
  Company Number: GB-RB-005752-07

PATIENT
  Age: 24 Year
  Sex: Male

DRUGS (1)
  1. SUBOXONE [Suspect]
     Route: 065
     Dates: start: 20070201

REACTIONS (4)
  - COLLAPSE OF LUNG [None]
  - DIABETES MELLITUS [None]
  - INFLUENZA [None]
  - PNEUMONIA [None]
